FAERS Safety Report 9681056 (Version 2)
Quarter: 2013Q4

REPORT INFORMATION
  Report Type: Report from Study
  Country: AR (occurrence: AR)
  Receive Date: 20131111
  Receipt Date: 20131210
  Transmission Date: 20140711
  Serious: Yes (Other)
  Sender: FDA-Public Use
  Company Number: PHHY2013AR128049

PATIENT
  Sex: Female

DRUGS (2)
  1. EXFORGE [Suspect]
     Indication: HYPERTENSION
     Dosage: 0.5 TABLET (320/10 MG) DAILY
     Route: 048
     Dates: start: 2010
  2. EXFORGE [Suspect]
     Dosage: 0.5 TABLET (320/10 MG) PLUS 0.5 TABLET (160/5 MG) DAILY
     Route: 048
     Dates: start: 2010

REACTIONS (3)
  - Large intestine polyp [Recovering/Resolving]
  - Occult blood [Recovering/Resolving]
  - Wrong technique in drug usage process [Recovering/Resolving]
